FAERS Safety Report 6399409-9 (Version None)
Quarter: 2009Q4

REPORT INFORMATION
  Report Type: 
  Country: None (occurrence: None)
  Receive Date: 20091014
  Receipt Date: 20091002
  Transmission Date: 20100525
  Serious: Yes (Hospitalization)
  Sender: FDA-Public Use
  Company Number: JP-AMGEN-US350923

PATIENT
  Sex: Female

DRUGS (12)
  1. ENBREL [Suspect]
     Indication: RHEUMATOID ARTHRITIS
     Route: 058
     Dates: start: 20060718, end: 20070110
  2. METHOTREXATE [Suspect]
     Indication: RHEUMATOID ARTHRITIS
     Dosage: UNSPECIFIED
     Route: 048
  3. PREDONINE [Concomitant]
     Indication: POLYMYOSITIS
     Route: 048
  4. BONALON [Concomitant]
     Indication: OSTEOPOROSIS
     Route: 048
  5. ISONIAZID [Concomitant]
     Indication: ANTIBIOTIC PROPHYLAXIS
     Route: 048
  6. MEDICON [Concomitant]
     Indication: INTERSTITIAL LUNG DISEASE
     Dosage: 3 DF/DAY
     Route: 048
  7. PYDOXAL [Concomitant]
     Indication: ANTIBIOTIC PROPHYLAXIS
     Route: 048
  8. TAKEPRON [Concomitant]
     Indication: GASTRITIS
     Route: 048
  9. MAGNESIUM OXIDE [Concomitant]
     Indication: CONSTIPATION
     Route: 048
  10. CINAL [Concomitant]
     Indication: VITAMIN C DEFICIENCY
     Route: 048
  11. MUCOSOLVAN [Concomitant]
     Indication: INTERSTITIAL LUNG DISEASE
     Route: 048
  12. CLARITH [Concomitant]
     Indication: INTERSTITIAL LUNG DISEASE
     Route: 048

REACTIONS (3)
  - DRUG INEFFECTIVE [None]
  - EXTRAPULMONARY TUBERCULOSIS [None]
  - THYROID CANCER [None]
